FAERS Safety Report 16688087 (Version 2)
Quarter: 2019Q3

REPORT INFORMATION
  Report Type: Spontaneous
  Country: RU (occurrence: RU)
  Receive Date: 20190809
  Receipt Date: 20190816
  Transmission Date: 20191004
  Serious: Yes (Hospitalization, Other)
  Sender: FDA-Public Use
  Company Number: RU-PFIZER INC-2019336635

PATIENT
  Sex: Female

DRUGS (5)
  1. DOXORUBICIN HCL [Suspect]
     Active Substance: DOXORUBICIN HYDROCHLORIDE
     Indication: NON-HODGKIN^S LYMPHOMA STAGE II
     Dosage: UNK, CYCLIC
  2. RITUXIMAB. [Concomitant]
     Active Substance: RITUXIMAB
     Indication: NON-HODGKIN^S LYMPHOMA STAGE II
     Dosage: UNK, CYCLIC
  3. PREDNISOLONE. [Concomitant]
     Active Substance: PREDNISOLONE
     Indication: NON-HODGKIN^S LYMPHOMA STAGE II
     Dosage: UNK, CYCLIC
  4. VINCRISTINE [Concomitant]
     Active Substance: VINCRISTINE
     Indication: NON-HODGKIN^S LYMPHOMA STAGE II
     Dosage: UNK, CYCLIC
  5. CYCLOPHOSPHAMIDE. [Concomitant]
     Active Substance: CYCLOPHOSPHAMIDE
     Indication: NON-HODGKIN^S LYMPHOMA STAGE II
     Dosage: UNK, CYCLIC

REACTIONS (7)
  - Hypertension [Unknown]
  - Coronary artery stenosis [Unknown]
  - Dyslipidaemia [Unknown]
  - Acute coronary syndrome [Unknown]
  - Coronary artery disease [Unknown]
  - Angina pectoris [Recovered/Resolved]
  - Obesity [Unknown]

NARRATIVE: CASE EVENT DATE: 2018
